FAERS Safety Report 4849912-5 (Version None)
Quarter: 2005Q4

REPORT INFORMATION
  Report Type: 
  Country: None (occurrence: None)
  Receive Date: 20051114
  Receipt Date: 20050114
  Transmission Date: 20060501
  Serious: Yes (Hospitalization)
  Sender: FDA-Public Use
  Company Number: 20050100017

PATIENT
  Age: 33 Year
  Sex: Female

DRUGS (1)
  1. PROMETHAZINE [Suspect]
     Dosage: IV
     Route: 042
     Dates: start: 20030205, end: 20030205

REACTIONS (1)
  - VENOUS THROMBOSIS [None]
